FAERS Safety Report 4640303-9 (Version None)
Quarter: 2005Q2

REPORT INFORMATION
  Report Type: 
  Country: None (occurrence: None)
  Receive Date: 20050420
  Receipt Date: 20040604
  Transmission Date: 20051028
  Serious: No
  Sender: FDA-Public Use
  Company Number: US-GLAXOSMITHKLINE-A0513487A

PATIENT
  Sex: Male

DRUGS (1)
  1. ESKALITH [Suspect]
     Dosage: 900MG PER DAY
     Route: 048

REACTIONS (1)
  - TREMOR [None]
